FAERS Safety Report 19158688 (Version 1)
Quarter: 2021Q2

REPORT INFORMATION
  Report Type: Spontaneous
  Country: US (occurrence: US)
  Receive Date: 20210420
  Receipt Date: 20210420
  Transmission Date: 20210717
  Serious: Yes (Other)
  Sender: FDA-Public Use
  Company Number: US-OTSUKA-2021_013189

PATIENT
  Age: 19 Year
  Sex: Female

DRUGS (3)
  1. STRATTERA [Suspect]
     Active Substance: ATOMOXETINE HYDROCHLORIDE
     Indication: PRODUCT USED FOR UNKNOWN INDICATION
     Dosage: UNK
     Route: 065
  2. LEXAPRO [Suspect]
     Active Substance: ESCITALOPRAM OXALATE
     Indication: PRODUCT USED FOR UNKNOWN INDICATION
     Dosage: UNK
     Route: 065
  3. ABILIFY [Suspect]
     Active Substance: ARIPIPRAZOLE
     Indication: PRODUCT USED FOR UNKNOWN INDICATION
     Dosage: UNK
     Route: 065

REACTIONS (15)
  - Bipolar disorder [Unknown]
  - Attention deficit hyperactivity disorder [Unknown]
  - Tremor [Unknown]
  - Intentional self-injury [Unknown]
  - Condition aggravated [Unknown]
  - Major depression [Unknown]
  - Hypoaesthesia [Unknown]
  - Psychiatric symptom [Unknown]
  - Suicidal ideation [Unknown]
  - Body dysmorphic disorder [Unknown]
  - Weight increased [Unknown]
  - Post-traumatic stress disorder [Unknown]
  - Feeling abnormal [Unknown]
  - Anxiety [Unknown]
  - Depressed mood [Unknown]
